FAERS Safety Report 23206225 (Version 2)
Quarter: 2023Q4

REPORT INFORMATION
  Report Type: Spontaneous
  Country: AT (occurrence: AT)
  Receive Date: 20231120
  Receipt Date: 20231204
  Transmission Date: 20240109
  Serious: Yes (Other)
  Sender: FDA-Public Use
  Company Number: AT-DSJP-DSE-2023-147384

PATIENT
  Sex: Female

DRUGS (6)
  1. ENHERTU [Suspect]
     Active Substance: FAM-TRASTUZUMAB DERUXTECAN-NXKI
     Indication: Hormone receptor positive breast cancer
     Dosage: 286.2 MG (5.4MG/KG BODY WEIGHT)
     Route: 065
     Dates: start: 20230627, end: 20230919
  2. ENHERTU [Suspect]
     Active Substance: FAM-TRASTUZUMAB DERUXTECAN-NXKI
     Indication: Hormone receptor positive breast cancer
  3. ENHERTU [Suspect]
     Active Substance: FAM-TRASTUZUMAB DERUXTECAN-NXKI
     Indication: HER2 positive breast cancer
  4. ENHERTU [Suspect]
     Active Substance: FAM-TRASTUZUMAB DERUXTECAN-NXKI
     Indication: Breast cancer metastatic
  5. HERCEPTIN [Concomitant]
     Active Substance: TRASTUZUMAB
     Indication: Breast cancer metastatic
     Dosage: UNK
     Route: 065
  6. PERJETA [Concomitant]
     Active Substance: PERTUZUMAB
     Indication: Breast cancer metastatic
     Dosage: UNK
     Route: 065

REACTIONS (13)
  - Ascites [Unknown]
  - Metastases to pleura [Unknown]
  - Metastases to liver [Unknown]
  - Lymphangiosis carcinomatosa [Unknown]
  - Metastases to peritoneum [Unknown]
  - Metastases to retroperitoneum [Unknown]
  - Pericardial effusion [Unknown]
  - Pulmonary embolism [Unknown]
  - Pleural effusion [Unknown]
  - Cough [Unknown]
  - Dyspnoea [Unknown]
  - Pneumonitis [Unknown]
  - Pneumonia [Unknown]

NARRATIVE: CASE EVENT DATE: 20231010
